FAERS Safety Report 9633883 (Version 1)
Quarter: 2013Q4

REPORT INFORMATION
  Report Type: Spontaneous
  Country: CO (occurrence: CO)
  Receive Date: 20131021
  Receipt Date: 20131021
  Transmission Date: 20140711
  Serious: Yes (Death, Hospitalization)
  Sender: FDA-Public Use
  Company Number: CO-IPSEN BIOPHARMACEUTICALS, INC.-2013-4599

PATIENT
  Age: 71 Year
  Sex: Male

DRUGS (3)
  1. SOMATULINE [Suspect]
     Indication: THYROID CANCER
     Dosage: 120 MG
     Route: 058
  2. SOMATULINE [Suspect]
     Indication: OFF LABEL USE
  3. METFORMIN [Concomitant]
     Indication: DIABETES MELLITUS
     Route: 048
     Dates: start: 201309

REACTIONS (3)
  - Death [Fatal]
  - Dyspnoea [Unknown]
  - Choking sensation [Unknown]
